FAERS Safety Report 16678334 (Version 1)
Quarter: 2019Q3

REPORT INFORMATION
  Report Type: Spontaneous
  Country: US (occurrence: US)
  Receive Date: 20190807
  Receipt Date: 20190807
  Transmission Date: 20191004
  Serious: Yes (Other)
  Sender: FDA-Public Use
  Company Number: US-BRACCO-2019US03839

PATIENT
  Sex: Female

DRUGS (1)
  1. ISOVUE 370 [Suspect]
     Active Substance: IOPAMIDOL
     Indication: COMPUTERISED TOMOGRAM THORAX
     Dosage: UNK, SINGLE
     Route: 042
     Dates: start: 201812, end: 201812

REACTIONS (8)
  - Wound [Unknown]
  - Injection site oedema [Unknown]
  - Muscle atrophy [Unknown]
  - Scar [Unknown]
  - Chemical burn [Unknown]
  - Peripheral nerve injury [Unknown]
  - Mobility decreased [Unknown]
  - Burning sensation [Unknown]

NARRATIVE: CASE EVENT DATE: 201812
